FAERS Safety Report 21904007 (Version 1)
Quarter: 2023Q1

REPORT INFORMATION
  Report Type: Spontaneous
  Country: ES (occurrence: ES)
  Receive Date: 20230124
  Receipt Date: 20230124
  Transmission Date: 20230418
  Serious: Yes (Life-Threatening, Hospitalization, Other)
  Sender: FDA-Public Use
  Company Number: None

PATIENT
  Age: 67 Year
  Sex: Male

DRUGS (7)
  1. RITUXIMAB [Suspect]
     Active Substance: RITUXIMAB
     Indication: Richter^s syndrome
     Dosage: 673 MG, SINGLE (375 MG/M2)
     Route: 042
     Dates: start: 20230104, end: 20230104
  2. DOXORUBICIN HYDROCHLORIDE [Suspect]
     Active Substance: DOXORUBICIN HYDROCHLORIDE
     Indication: Richter^s syndrome
     Dosage: 18 MG, 1X/DAY IV IN PERFUSION OF 24H
     Route: 042
     Dates: start: 20230104, end: 20230107
  3. VINCRISTINE [Suspect]
     Active Substance: VINCRISTINE
     Indication: Richter^s syndrome
     Dosage: 0.72 MG, 1X/DAY IV IN PERFUSION OF 24H
     Route: 042
     Dates: start: 20230104, end: 20230107
  4. CYCLOPHOSPHAMIDE [Suspect]
     Active Substance: CYCLOPHOSPHAMIDE
     Indication: Richter^s syndrome
     Dosage: 861 MG, SINGLE (480 MG/M2) IV IN PERFUSION OF 1 HOUR
     Route: 042
     Dates: start: 20230108, end: 20230108
  5. ETOPOSIDE [Suspect]
     Active Substance: ETOPOSIDE
     Indication: Richter^s syndrome
     Dosage: 90 MG, 1X/DAY IV IN PERFUSION OF 24HR
     Route: 042
     Dates: start: 20230104, end: 20230107
  6. VENETOCLAX [Suspect]
     Active Substance: VENETOCLAX
     Indication: Richter^s syndrome
     Dosage: 400 MG, 1X/DAY
     Route: 048
     Dates: start: 20230106, end: 20230114
  7. VENETOCLAX [Suspect]
     Active Substance: VENETOCLAX
     Dosage: 100 MG, 1X/DAY
     Route: 048
     Dates: start: 20230104, end: 20230105

REACTIONS (2)
  - Agranulocytosis [Recovering/Resolving]
  - Off label use [Recovering/Resolving]

NARRATIVE: CASE EVENT DATE: 20230113
